FAERS Safety Report 8926987 (Version 2)
Quarter: 2013Q1

REPORT INFORMATION
  Report Type: Spontaneous
  Country: US (occurrence: US)
  Receive Date: 20121127
  Receipt Date: 20130104
  Transmission Date: 20140127
  Serious: Yes (Other)
  Sender: FDA-Public Use
  Company Number: US-SHIRE-ALL1-2012-05656

PATIENT
  Age: 9 Year
  Sex: Male
  Weight: 59.86 kg

DRUGS (5)
  1. INTUNIV [Suspect]
     Indication: ATTENTION DEFICIT/HYPERACTIVITY DISORDER
     Dosage: 2 MG, 1X/DAY:QD
     Route: 048
     Dates: end: 20110427
  2. INTUNIV [Suspect]
     Indication: IMPULSIVE BEHAVIOUR
  3. INTUNIV [Suspect]
     Indication: AGGRESSION
  4. LITHIUM CARBONATE [Concomitant]
     Indication: AGGRESSION
     Dosage: 300 MG, 1X/DAY:QD
     Route: 048
  5. LITHIUM CARBONATE [Concomitant]
     Indication: AFFECTIVE DISORDER
     Dosage: 450 MG, UNKNOWN
     Route: 065

REACTIONS (4)
  - Self injurious behaviour [Unknown]
  - Aggression [Unknown]
  - Dyskinesia [Recovered/Resolved]
  - Angina pectoris [Recovered/Resolved]
